FAERS Safety Report 7543567-7 (Version None)
Quarter: 2011Q2

REPORT INFORMATION
  Report Type: 
  Country: None (occurrence: None)
  Receive Date: 20110613
  Receipt Date: 20020521
  Transmission Date: 20111010
  Serious: Yes (Death, Other)
  Sender: FDA-Public Use
  Company Number: PHBS2002AU00447

PATIENT
  Sex: Male

DRUGS (4)
  1. CITALOPRAM HYDROBROMIDE [Concomitant]
     Dosage: 20 MG, QD
     Route: 048
  2. DIAZEPAM [Concomitant]
     Dosage: 2 MG, QD
     Route: 048
  3. CLOZAPINE [Suspect]
     Dosage: 400 MG, QD
     Route: 048
     Dates: start: 19950626
  4. RANITIDINE [Concomitant]
     Dosage: 150 MG, QD
     Route: 048

REACTIONS (5)
  - DEATH [None]
  - DIZZINESS [None]
  - CHEST PAIN [None]
  - EXPOSURE TO EXTREME TEMPERATURE [None]
  - PULMONARY OEDEMA [None]
